FAERS Safety Report 13335701 (Version 1)
Quarter: 2017Q1

REPORT INFORMATION
  Report Type: Spontaneous
  Country: US (occurrence: US)
  Receive Date: 20170315
  Receipt Date: 20170315
  Transmission Date: 20170428
  Serious: No
  Sender: FDA-Public Use
  Company Number: US-TEVA-731492ACC

PATIENT
  Sex: Female
  Weight: 74.91 kg

DRUGS (1)
  1. BUPRENORPHINE AND NALOXONE SUBLINGUAL TABLETS [Suspect]
     Active Substance: BUPRENORPHINE\NALOXONE
     Indication: TOXICITY TO VARIOUS AGENTS
     Dosage: BUPRENORPHINE W/NALOXONE : 8/2 MG
     Dates: start: 201608

REACTIONS (1)
  - Rash [Unknown]
